FAERS Safety Report 7341657-5 (Version None)
Quarter: 2011Q1

REPORT INFORMATION
  Report Type: 
  Country: None (occurrence: None)
  Receive Date: 20110309
  Receipt Date: 20110303
  Transmission Date: 20110831
  Serious: No
  Sender: FDA-Public Use
  Company Number: US-PFIZER INC-2011047402

PATIENT
  Sex: Female
  Weight: 77.098 kg

DRUGS (2)
  1. WELLBUTRIN [Concomitant]
     Indication: ANXIETY
     Dosage: UNK
  2. XANAX [Suspect]
     Indication: ANXIETY
     Dosage: 1 MG, 4X/DAY
     Route: 048
     Dates: start: 19980501

REACTIONS (2)
  - PRODUCT TASTE ABNORMAL [None]
  - DRUG INEFFECTIVE [None]
